FAERS Safety Report 23918355 (Version 2)
Quarter: 2024Q2

REPORT INFORMATION
  Report Type: Spontaneous
  Country: CA (occurrence: CA)
  Receive Date: 20240530
  Receipt Date: 20240628
  Transmission Date: 20240716
  Serious: Yes (Other)
  Sender: FDA-Public Use
  Company Number: CA-PFIZER INC-202400174268

PATIENT

DRUGS (6)
  1. INFLECTRA [Suspect]
     Active Substance: INFLIXIMAB-DYYB
     Indication: Ankylosing spondylitis
     Dosage: 500 MG, EVERY 6 WEEKS
     Route: 042
     Dates: start: 20231207
  2. INFLECTRA [Suspect]
     Active Substance: INFLIXIMAB-DYYB
     Dosage: 500 MG, EVERY 6 WEEKS
     Route: 042
     Dates: start: 20240410
  3. CELEBREX [Concomitant]
     Active Substance: CELECOXIB
     Dosage: 2 DF (2 PILLS), DAILY
  4. METHOTREXATE [Concomitant]
     Active Substance: METHOTREXATE
     Dosage: 4 DF (4 PILLS), EVERY WEEKLY
  5. ACETAMINOPHEN\OXYCODONE HYDROCHLORIDE\OXYCODONE TEREPHTHALATE [Concomitant]
     Active Substance: ACETAMINOPHEN\OXYCODONE HYDROCHLORIDE\OXYCODONE TEREPHTHALATE
     Dosage: 6 DF (6 PILLS), AS NEEDED
  6. TRAZODONE [Concomitant]
     Active Substance: TRAZODONE HYDROCHLORIDE
     Dosage: 1 DF

REACTIONS (3)
  - Fall [Not Recovered/Not Resolved]
  - Fibula fracture [Not Recovered/Not Resolved]
  - Tibia fracture [Not Recovered/Not Resolved]

NARRATIVE: CASE EVENT DATE: 20240519
